FAERS Safety Report 8283501-8 (Version None)
Quarter: 2012Q2

REPORT INFORMATION
  Report Type: 
  Country: None (occurrence: None)
  Receive Date: 20120413
  Receipt Date: 20120411
  Transmission Date: 20120825
  Serious: Yes (Death, Other)
  Sender: FDA-Public Use
  Company Number: PHHY2012TN030732

PATIENT
  Age: 32 Year
  Sex: Male

DRUGS (9)
  1. ETOPOSIDE [Suspect]
     Indication: CHEMOTHERAPY
  2. CEFTAZIDIME [Concomitant]
     Indication: ANTIBIOTIC THERAPY
  3. BLEOMYCIN SULFATE [Suspect]
     Indication: CHEMOTHERAPY
  4. DOXORUBICIN HCL [Suspect]
     Indication: CHEMOTHERAPY
  5. AMIKACIN [Concomitant]
     Indication: ANTIBIOTIC THERAPY
  6. CYCLOPHOSPHAMIDE [Suspect]
     Indication: CHEMOTHERAPY
  7. IMIPENEM/CILASTATIN [Concomitant]
     Indication: ANTIBIOTIC THERAPY
  8. PREDNISONE TAB [Suspect]
     Indication: CHEMOTHERAPY
  9. CIPROFLOXACIN HYDROCHLORIDE [Concomitant]
     Indication: ANTIBIOTIC THERAPY

REACTIONS (11)
  - BACTERIAL SEPSIS [None]
  - NEUTROPENIA [None]
  - ASPERGILLOSIS [None]
  - WOUND COMPLICATION [None]
  - WOUND NECROSIS [None]
  - GENERAL PHYSICAL HEALTH DETERIORATION [None]
  - WOUND SECRETION [None]
  - MULTI-ORGAN FAILURE [None]
  - PYREXIA [None]
  - CACHEXIA [None]
  - DRUG INEFFECTIVE [None]
